FAERS Safety Report 4598860-7 (Version None)
Quarter: 2005Q1

REPORT INFORMATION
  Report Type: 
  Country: None (occurrence: None)
  Receive Date: 20050304
  Receipt Date: 20050223
  Transmission Date: 20050727
  Serious: Yes (Life-Threatening)
  Sender: FDA-Public Use
  Company Number: FR-JNJFOC-20050205651

PATIENT
  Sex: Male
  Weight: 168 kg

DRUGS (9)
  1. BLINDED; ABCIXIMA [Suspect]
     Indication: ACUTE MYOCARDIAL INFARCTION
     Route: 042
  2. RETEPLASE [Suspect]
     Indication: ACUTE MYOCARDIAL INFARCTION
     Route: 042
  3. PLACEBO [Suspect]
     Indication: ACUTE MYOCARDIAL INFARCTION
     Route: 042
  4. LOVENOX [Concomitant]
     Indication: ACUTE MYOCARDIAL INFARCTION
     Route: 058
  5. PLAVIX [Concomitant]
     Indication: ACUTE MYOCARDIAL INFARCTION
     Route: 049
  6. KARDEGIC [Concomitant]
     Indication: ACUTE MYOCARDIAL INFARCTION
     Route: 049
  7. TRIATEC [Concomitant]
     Indication: ACUTE MYOCARDIAL INFARCTION
     Route: 049
  8. LASILIX [Concomitant]
     Route: 042
  9. ISOPTIN [Concomitant]
     Indication: ACUTE MYOCARDIAL INFARCTION
     Route: 049

REACTIONS (4)
  - CARDIAC FAILURE [None]
  - CARDIAC TAMPONADE [None]
  - DRUG INTERACTION [None]
  - PERICARDIAL HAEMORRHAGE [None]
